FAERS Safety Report 9247390 (Version 2)
Quarter: 2013Q2

REPORT INFORMATION
  Report Type: Spontaneous
  Country: FR (occurrence: FR)
  Receive Date: 20130423
  Receipt Date: 20130426
  Transmission Date: 20140414
  Serious: Yes (Hospitalization, Other)
  Sender: FDA-Public Use
  Company Number: FR-UCBSA-083672

PATIENT
  Age: 63 Year
  Sex: Female

DRUGS (7)
  1. VIMPAT [Suspect]
     Indication: EPILEPSY
     Dates: start: 20120601, end: 20130404
  2. XARELTO [Suspect]
     Indication: ARRHYTHMIA
     Dates: start: 20130307, end: 20130310
  3. DIGOXINE [Suspect]
     Indication: ARRHYTHMIA
     Dates: start: 20130307, end: 20130404
  4. PREVISCAN [Suspect]
     Indication: ARRHYTHMIA
     Dates: start: 20130310, end: 20130404
  5. TEGRETOL [Concomitant]
     Indication: EPILEPSY
  6. RIVOTRIL [Concomitant]
     Indication: EPILEPSY
  7. CORDARONE [Concomitant]
     Indication: ARRHYTHMIA
     Dates: start: 20130307

REACTIONS (6)
  - Atrial fibrillation [Unknown]
  - Vertigo [Recovered/Resolved]
  - Nausea [Recovered/Resolved]
  - Vomiting [Recovered/Resolved]
  - Headache [Recovered/Resolved]
  - International normalised ratio increased [Unknown]
